FAERS Safety Report 8356297-9 (Version None)
Quarter: 2012Q2

REPORT INFORMATION
  Report Type: 
  Country: None (occurrence: None)
  Receive Date: 20120514
  Receipt Date: 20120507
  Transmission Date: 20120825
  Serious: Yes (Other)
  Sender: FDA-Public Use
  Company Number: US-SANOFI-AVENTIS-2012SA017130

PATIENT
  Age: 79 Year
  Sex: Male
  Weight: 82.72 kg

DRUGS (9)
  1. CARTIA XT [Concomitant]
     Dates: end: 20120312
  2. ASPIRIN [Concomitant]
     Indication: CORONARY ARTERY DISEASE
  3. METOPROLOL SUCCINATE [Concomitant]
     Dates: end: 20120312
  4. ZETIA [Concomitant]
  5. CRESTOR [Concomitant]
     Dates: end: 20120312
  6. METOPROLOL SUCCINATE [Concomitant]
     Indication: CORONARY ARTERY DISEASE
     Dates: end: 20120312
  7. DABIGATRAN ETEXILATE [Concomitant]
     Indication: CEREBROVASCULAR ACCIDENT PROPHYLAXIS
     Dates: start: 20110117
  8. AMIODARONE HCL [Suspect]
     Route: 065
  9. MULTAQ [Suspect]
     Indication: ATRIAL FIBRILLATION
     Route: 065
     Dates: start: 20110117, end: 20120225

REACTIONS (3)
  - HYPOXIA [None]
  - INTERSTITIAL LUNG DISEASE [None]
  - DYSPNOEA [None]
